FAERS Safety Report 6744185-0 (Version None)
Quarter: 2010Q2

REPORT INFORMATION
  Report Type: 
  Country: None (occurrence: None)
  Receive Date: 20100527
  Receipt Date: 20100516
  Transmission Date: 20101027
  Serious: No
  Sender: FDA-Public Use
  Company Number: PT-GENENTECH-301696

PATIENT
  Sex: Female
  Weight: 76 kg

DRUGS (3)
  1. MABTHERA [Suspect]
     Indication: RHEUMATOID ARTHRITIS
     Dosage: 1000 MG, Q2W
     Route: 042
     Dates: start: 20080131, end: 20091203
  2. METHOTREXATE [Concomitant]
     Indication: RHEUMATOID ARTHRITIS
     Dosage: 10 MG, 1/WEEK
  3. ACEMETACIN [Concomitant]
     Indication: RHEUMATOID ARTHRITIS
     Dosage: 100 UNK, QD

REACTIONS (2)
  - CHEST PAIN [None]
  - PALPITATIONS [None]
